FAERS Safety Report 6188163-1 (Version None)
Quarter: 2009Q2

REPORT INFORMATION
  Report Type: 
  Country: None (occurrence: None)
  Receive Date: 20090513
  Receipt Date: 20081217
  Transmission Date: 20091009
  Serious: No
  Sender: FDA-Public Use
  Company Number: A0759295A

PATIENT
  Age: 73 Year
  Sex: Male

DRUGS (7)
  1. DYNACIRC CR [Suspect]
     Indication: HYPERTENSION
     Dosage: 10MG PER DAY
     Route: 048
  2. CLONIDINE [Concomitant]
  3. PRAVASTATIN [Concomitant]
  4. COREG [Concomitant]
  5. LISINOPRIL [Concomitant]
  6. GLYBURIDE [Concomitant]
  7. ZETIA [Concomitant]

REACTIONS (1)
  - BLOOD PRESSURE INADEQUATELY CONTROLLED [None]
